FAERS Safety Report 11634619 (Version 7)
Quarter: 2015Q4

REPORT INFORMATION
  Report Type: Spontaneous
  Country: JP (occurrence: JP)
  Receive Date: 20151015
  Receipt Date: 20151228
  Transmission Date: 20160304
  Serious: Yes (Death)
  Sender: FDA-Public Use
  Company Number: JP-B.I. PHARMACEUTICALS,INC./RIDGEFIELD-2015-BI-56825NB

PATIENT
  Age: 64 Year
  Sex: Male
  Weight: 61.6 kg

DRUGS (29)
  1. MICARDIS [Suspect]
     Active Substance: TELMISARTAN
     Indication: HYPERTENSION
     Dosage: 40 MG
     Route: 048
     Dates: start: 20100518, end: 20150812
  2. FOSAMAC [Suspect]
     Active Substance: ALENDRONATE SODIUM
     Indication: PROPHYLAXIS
     Dosage: 35 MG
     Route: 048
     Dates: end: 20150812
  3. PROGRAF [Suspect]
     Active Substance: TACROLIMUS\TACROLIMUS ANHYDROUS
     Dosage: 3 MG
     Route: 048
     Dates: start: 20100531, end: 20150812
  4. PREDNISOLONE. [Suspect]
     Active Substance: PREDNISOLONE
     Dosage: 10 MG
     Route: 048
     Dates: start: 20110203, end: 20150812
  5. ALDACTONE A [Concomitant]
     Active Substance: SPIRONOLACTONE
     Indication: PROPHYLAXIS
     Route: 048
     Dates: end: 20080318
  6. L-CARTIN FF [Suspect]
     Active Substance: LEVOCARNITINE
     Indication: PROPHYLAXIS
     Dosage: 750 MG
     Route: 048
     Dates: end: 20150812
  7. CONIEL [Suspect]
     Active Substance: BENIDIPINE HYDROCHLORIDE
     Indication: PRODUCT USED FOR UNKNOWN INDICATION
     Dosage: 8 MG
     Route: 048
     Dates: end: 20150812
  8. NORVASC [Concomitant]
     Active Substance: AMLODIPINE BESYLATE
     Indication: PRODUCT USED FOR UNKNOWN INDICATION
     Route: 048
  9. PREMINENT [Concomitant]
     Active Substance: HYDROCHLOROTHIAZIDE\LOSARTAN POTASSIUM
     Indication: LUPUS NEPHRITIS
     Route: 048
  10. ARTIST [Concomitant]
     Active Substance: CARVEDILOL
     Indication: PRODUCT USED FOR UNKNOWN INDICATION
     Dosage: 20 MG
     Route: 048
     Dates: start: 20100610, end: 20100902
  11. PREDNISOLONE. [Suspect]
     Active Substance: PREDNISOLONE
     Dosage: 15 MG
     Route: 048
     Dates: start: 20100913, end: 20110105
  12. BAYASPIRIN [Suspect]
     Active Substance: ASPIRIN
     Indication: PROPHYLAXIS
     Dosage: 100 MG
     Route: 048
     Dates: start: 20101007, end: 20150812
  13. BAYASPIRIN [Suspect]
     Active Substance: ASPIRIN
     Dosage: 100 MG
     Route: 048
     Dates: start: 20101007
  14. BLOPRESS [Concomitant]
     Active Substance: CANDESARTAN CILEXETIL
     Indication: PRODUCT USED FOR UNKNOWN INDICATION
     Dosage: 8 MG
     Route: 048
     Dates: end: 20080521
  15. ALLOZYM [Concomitant]
     Active Substance: ALLOPURINOL
     Indication: PRODUCT USED FOR UNKNOWN INDICATION
     Dosage: 200 MG
     Route: 048
     Dates: end: 20080924
  16. ODRIC [Concomitant]
     Active Substance: TRANDOLAPRIL
     Indication: PRODUCT USED FOR UNKNOWN INDICATION
     Dosage: 1 MG
     Route: 048
  17. WYTENS [Concomitant]
     Indication: PRODUCT USED FOR UNKNOWN INDICATION
     Dosage: 4 MG
     Route: 048
     Dates: end: 20101110
  18. URINORM [Concomitant]
     Active Substance: BENZBROMARONE
     Indication: PRODUCT USED FOR UNKNOWN INDICATION
     Dosage: 100 MG
     Route: 048
     Dates: end: 20101110
  19. LASIX [Concomitant]
     Active Substance: FUROSEMIDE
     Indication: OEDEMA
     Dosage: 40 MG
     Route: 048
     Dates: end: 20100902
  20. PREDNISOLONE. [Suspect]
     Active Substance: PREDNISOLONE
     Indication: LUPUS NEPHRITIS
     Dosage: 20 MG
     Route: 048
     Dates: start: 20100531, end: 20100912
  21. SODIUM RABEPRAZOLE [Suspect]
     Active Substance: RABEPRAZOLE SODIUM
     Indication: PROPHYLAXIS
     Dosage: 10 MG
     Route: 048
     Dates: end: 20150812
  22. NOVORAPID [Suspect]
     Active Substance: INSULIN ASPART
     Indication: PROPHYLAXIS
     Route: 042
     Dates: start: 20100625, end: 20150812
  23. BASEN [Concomitant]
     Active Substance: VOGLIBOSE
     Indication: PRODUCT USED FOR UNKNOWN INDICATION
     Dosage: 0.9 MG
     Route: 048
     Dates: end: 20080702
  24. PARIET [Concomitant]
     Active Substance: RABEPRAZOLE SODIUM
     Indication: PROPHYLAXIS
     Dosage: 10 MG
     Route: 048
  25. SALOBEL [Concomitant]
     Active Substance: ALLOPURINOL
     Indication: PRODUCT USED FOR UNKNOWN INDICATION
     Dosage: 100 MG
     Route: 048
     Dates: start: 20100610, end: 20100902
  26. PROGRAF [Suspect]
     Active Substance: TACROLIMUS\TACROLIMUS ANHYDROUS
     Indication: LUPUS NEPHRITIS
     Dosage: 2 MG
     Route: 048
     Dates: start: 20080319, end: 20100530
  27. PREDNISOLONE. [Suspect]
     Active Substance: PREDNISOLONE
     Dosage: 12.5 MG
     Route: 048
     Dates: start: 20110106, end: 20110202
  28. PLAVIX [Suspect]
     Active Substance: CLOPIDOGREL BISULFATE
     Indication: PROPHYLAXIS
     Dosage: 75 MG
     Route: 048
     Dates: end: 20150812
  29. CRESTOR [Concomitant]
     Active Substance: ROSUVASTATIN CALCIUM
     Indication: PRODUCT USED FOR UNKNOWN INDICATION
     Dosage: 5 MG
     Route: 048

REACTIONS (3)
  - Haematemesis [Fatal]
  - Diabetes mellitus [Not Recovered/Not Resolved]
  - Renal impairment [Unknown]

NARRATIVE: CASE EVENT DATE: 20100609
